FAERS Safety Report 4400079-7 (Version None)
Quarter: 2004Q3

REPORT INFORMATION
  Report Type: 
  Country: None (occurrence: None)
  Receive Date: 20040714
  Receipt Date: 20040706
  Transmission Date: 20050211
  Serious: Yes (Hospitalization, Other)
  Sender: FDA-Public Use
  Company Number: 2004217439DE

PATIENT
  Age: 8 Year
  Sex: Male
  Weight: 35.5 kg

DRUGS (1)
  1. GENOTROPIN [Suspect]
     Indication: HYPOPITUITARISM
     Dosage: 0.7 MG , QD, SUBCUTANEOUS
     Route: 058
     Dates: start: 20030606

REACTIONS (3)
  - BRAIN NEOPLASM [None]
  - MALIGNANT HISTIOCYTOSIS [None]
  - NEOPLASM RECURRENCE [None]
